FAERS Safety Report 19322144 (Version 5)
Quarter: 2021Q3

REPORT INFORMATION
  Report Type: Other
  Country: US (occurrence: US)
  Receive Date: 20210528
  Receipt Date: 20210823
  Transmission Date: 20211014
  Serious: Yes (Life-Threatening, Hospitalization)
  Sender: FDA-Public Use
  Company Number: US-ROCHE-2838175

PATIENT
  Age: 36 Year
  Sex: Female
  Weight: 113.5 kg

DRUGS (11)
  1. FLONASE [Concomitant]
     Active Substance: FLUTICASONE PROPIONATE
  2. PLAQUENIL [Concomitant]
     Active Substance: HYDROXYCHLOROQUINE SULFATE
  3. LINZESS [Concomitant]
     Active Substance: LINACLOTIDE
  4. NUVARING [Concomitant]
     Active Substance: ETHINYL ESTRADIOL\ETONOGESTREL
  5. CYMBALTA [Concomitant]
     Active Substance: DULOXETINE HYDROCHLORIDE
  6. LEVOTHYROXIN [Concomitant]
     Active Substance: LEVOTHYROXINE
  7. VITAMIN D3 [Concomitant]
     Active Substance: CHOLECALCIFEROL
  8. XENAZINE [Concomitant]
     Active Substance: TETRABENAZINE
  9. OCREVUS [Suspect]
     Active Substance: OCRELIZUMAB
     Indication: RELAPSING MULTIPLE SCLEROSIS
     Dosage: STRENGTH: 300 MG/10 ML, DATE OF TREATMENT: 10/JAN/2019, 25/JAN/2019, 05/JUL/2019, 20/DEC/2019, 05/JU
     Route: 042
     Dates: start: 20200528
  10. AIMOVIG [Concomitant]
     Active Substance: ERENUMAB-AOOE
  11. MAXALT [Concomitant]
     Active Substance: RIZATRIPTAN BENZOATE

REACTIONS (4)
  - Pneumonia bacterial [Unknown]
  - Oxygen saturation abnormal [Unknown]
  - Medical induction of coma [Unknown]
  - COVID-19 pneumonia [Not Recovered/Not Resolved]

NARRATIVE: CASE EVENT DATE: 20210507
